FAERS Safety Report 21543190 (Version 1)
Quarter: 2022Q4

REPORT INFORMATION
  Report Type: Spontaneous
  Country: US (occurrence: US)
  Receive Date: 20221102
  Receipt Date: 20221102
  Transmission Date: 20230113
  Serious: No
  Sender: FDA-Public Use
  Company Number: US-SA-SAC20221031001377

PATIENT
  Age: 68 Year
  Sex: Female

DRUGS (8)
  1. DUPIXENT [Suspect]
     Active Substance: DUPILUMAB
     Indication: Asthma
     Dosage: 1 DF, QOW
     Route: 058
     Dates: start: 20220325
  2. REMICADE [Concomitant]
     Active Substance: INFLIXIMAB
  3. ALBUTEROL [Concomitant]
     Active Substance: ALBUTEROL
  4. ESTRADIOL [Concomitant]
     Active Substance: ESTRADIOL
  5. ROSUVASTATIN [Concomitant]
     Active Substance: ROSUVASTATIN
  6. PREDNISONE [Concomitant]
     Active Substance: PREDNISONE
  7. KEPPRA [Concomitant]
     Active Substance: LEVETIRACETAM
  8. FEXOFENADINE [Concomitant]
     Active Substance: FEXOFENADINE HYDROCHLORIDE

REACTIONS (3)
  - Cystitis [Recovering/Resolving]
  - Influenza [Recovering/Resolving]
  - Nasopharyngitis [Recovering/Resolving]

NARRATIVE: CASE EVENT DATE: 20220801
